FAERS Safety Report 8188834-1 (Version None)
Quarter: 2012Q1

REPORT INFORMATION
  Report Type: 
  Country: None (occurrence: None)
  Receive Date: 20120306
  Receipt Date: 20120301
  Transmission Date: 20120608
  Serious: Yes (Congenital Anomaly, Other)
  Sender: FDA-Public Use
  Company Number: FR-ABBOTT-07P-056-0359029-00

PATIENT
  Sex: Male

DRUGS (2)
  1. FOLIC ACID [Suspect]
     Indication: MATERNAL EXPOSURE TIMING UNSPECIFIED
     Route: 064
  2. DEPAKENE [Suspect]
     Indication: MATERNAL EXPOSURE TIMING UNSPECIFIED
     Route: 064

REACTIONS (25)
  - MUSCULOSKELETAL STIFFNESS [None]
  - CEREBRAL DISORDER [None]
  - DYSPHAGIA [None]
  - PERIVENTRICULAR NODULAR HETEROTOPIA [None]
  - ENCOPRESIS [None]
  - MIGRAINE [None]
  - DYSGRAPHIA [None]
  - ANGIOTENSIN CONVERTING ENZYME INHIBITOR FOETOPATHY [None]
  - PSYCHOMOTOR RETARDATION [None]
  - DYSPRAXIA [None]
  - CONGENITAL CENTRAL NERVOUS SYSTEM ANOMALY [None]
  - SCOLIOSIS [None]
  - MOTOR DEVELOPMENTAL DELAY [None]
  - HEADACHE [None]
  - MOTOR DYSFUNCTION [None]
  - SKULL MALFORMATION [None]
  - HEAD DEFORMITY [None]
  - READING DISORDER [None]
  - CRYPTORCHISM [None]
  - LEUKODYSTROPHY [None]
  - ENURESIS [None]
  - MATERNAL EXPOSURE DURING PREGNANCY [None]
  - DYSMORPHISM [None]
  - ATRIAL SEPTAL DEFECT [None]
  - HYPOTONIA [None]
